FAERS Safety Report 7973499-1 (Version None)
Quarter: 2011Q4

REPORT INFORMATION
  Report Type: 
  Country: None (occurrence: None)
  Receive Date: 20111122
  Receipt Date: 20110620
  Transmission Date: 20120403
  Serious: No
  Sender: FDA-Public Use
  Company Number: PHHY2011US23419

PATIENT
  Age: 32 Year
  Sex: Female

DRUGS (19)
  1. TOPAMAX [Concomitant]
  2. SOLU-MEDROL [Concomitant]
  3. LORAZEPAM [Concomitant]
  4. ZOLOFT [Concomitant]
  5. XANAX [Concomitant]
  6. HYDROXYZINE [Concomitant]
  7. COPAXONE [Concomitant]
  8. CLARITIN [Concomitant]
  9. FLUTICASONE PROPIONATE [Concomitant]
  10. ELMIRON [Concomitant]
  11. ANTIBIOTICS (NO INGREDIENTS/SUBSTANCES) [Concomitant]
  12. MS COUTIN CR [Concomitant]
  13. LYRICA [Concomitant]
  14. VICODIN [Concomitant]
  15. TRAZODONE HCL [Concomitant]
  16. SERTRALINE HYDROCHLORIDE [Concomitant]
  17. GILENYA [Suspect]
     Indication: MULTIPLE SCLEROSIS
     Dosage: 0.5 MG, DAILY, ORAL
     Route: 048
     Dates: start: 20110304
  18. ADDERALL (AMFETAMIN ASPARTATE, AMFETAMIN SULFATE, DEXAMFETAMINE SACCHA [Concomitant]
  19. LEXAPRO [Concomitant]

REACTIONS (3)
  - FIBROMYALGIA [None]
  - INFLUENZA LIKE ILLNESS [None]
  - HEADACHE [None]
